FAERS Safety Report 8233934-0 (Version None)
Quarter: 2012Q1

REPORT INFORMATION
  Report Type: 
  Country: None (occurrence: None)
  Receive Date: 20120326
  Receipt Date: 20120313
  Transmission Date: 20120608
  Serious: Yes (Hospitalization)
  Sender: FDA-Public Use
  Company Number: CA-CELGENEUS-028-21880-12031521

PATIENT
  Age: 69 Year
  Sex: Male

DRUGS (1)
  1. REVLIMID [Suspect]
     Indication: MULTIPLE MYELOMA
     Route: 048

REACTIONS (5)
  - ABDOMINAL PAIN [None]
  - WHITE BLOOD CELL COUNT ABNORMAL [None]
  - PULMONARY MASS [None]
  - BLOOD PRESSURE INCREASED [None]
  - PYREXIA [None]
